FAERS Safety Report 17702857 (Version 2)
Quarter: 2022Q3

REPORT INFORMATION
  Report Type: Spontaneous
  Country: DE (occurrence: DE)
  Receive Date: 20200424
  Receipt Date: 20220923
  Transmission Date: 20221026
  Serious: Yes (Other)
  Sender: FDA-Public Use
  Company Number: DE-SUN PHARMACEUTICAL INDUSTRIES LTD-2020R1-244517

PATIENT
  Age: 42 Year
  Sex: Male

DRUGS (8)
  1. DEXAMETHASONE [Suspect]
     Active Substance: DEXAMETHASONE
     Indication: Intraocular pressure increased
     Dosage: UNK (0.1% 5 TIMES A DAY)
     Route: 061
  2. LATANOPROST [Suspect]
     Active Substance: LATANOPROST
     Dosage: UNK (0.005% ONCE A DAY)
     Route: 061
  3. LATANOPROST [Suspect]
     Active Substance: LATANOPROST
     Indication: Intraocular pressure increased
  4. LATANOPROST [Suspect]
     Active Substance: LATANOPROST
  5. OFLOXACIN [Concomitant]
     Active Substance: OFLOXACIN
     Indication: Intraocular pressure increased
     Dosage: UNK (0.3% 5 TIMES A DAY)
     Route: 061
  6. BRIMONIDINE [Concomitant]
     Active Substance: BRIMONIDINE TARTRATE
     Indication: Intraocular pressure increased
     Dosage: UNK (0.2% 3 TIMES A DAY)
     Route: 061
  7. RIMEXOLONE [Concomitant]
     Active Substance: RIMEXOLONE
     Indication: Intraocular pressure increased
     Dosage: UNK (1% 3 TIMES A DAY)
     Route: 061
  8. ACETAZOLAMIDE [Concomitant]
     Active Substance: ACETAZOLAMIDE
     Indication: Intraocular pressure increased
     Dosage: 250 MILLIGRAM, BID
     Route: 048

REACTIONS (2)
  - Drug ineffective [Unknown]
  - Intraocular pressure increased [Recovering/Resolving]
